FAERS Safety Report 9391176 (Version 1)
Quarter: 2013Q3

REPORT INFORMATION
  Report Type: Spontaneous
  Country: JP (occurrence: JP)
  Receive Date: 20130709
  Receipt Date: 20130709
  Transmission Date: 20140515
  Serious: Yes (Life-Threatening, Hospitalization, Other)
  Sender: FDA-Public Use
  Company Number: JP-EISAI INC-E3810-06456-SPO-JP

PATIENT
  Age: 77 Year
  Sex: Male

DRUGS (9)
  1. PARIET (RABEPRAZOLE) [Suspect]
     Indication: GASTRODUODENAL ULCER
     Route: 048
     Dates: start: 20090629, end: 20130416
  2. PARIET (RABEPRAZOLE) [Suspect]
     Indication: GASTROOESOPHAGEAL REFLUX DISEASE
  3. ASPIRIN [Concomitant]
     Indication: MYOCARDIAL INFARCTION
     Route: 048
     Dates: start: 20090629
  4. PLAVIX [Concomitant]
     Indication: MYOCARDIAL INFARCTION
     Route: 048
     Dates: start: 20090629, end: 20130527
  5. RENIVACE [Concomitant]
     Indication: HYPERTENSION
     Route: 048
     Dates: start: 20090629, end: 20130527
  6. ARTIST [Concomitant]
     Indication: HYPERTENSION
     Route: 048
     Dates: start: 20090629, end: 20130527
  7. ATELEC [Concomitant]
     Indication: HYPERTENSION
     Route: 048
     Dates: start: 20070123, end: 20110227
  8. WARFARIN [Concomitant]
     Indication: ATRIAL FIBRILLATION
     Route: 048
     Dates: start: 20090129, end: 20130527
  9. LOCHOL [Concomitant]
     Indication: DYSLIPIDAEMIA
     Route: 048
     Dates: start: 20090515, end: 20110227

REACTIONS (3)
  - Renal failure chronic [Recovered/Resolved with Sequelae]
  - Pneumonia [Unknown]
  - Tubulointerstitial nephritis [Recovered/Resolved with Sequelae]
